FAERS Safety Report 5952206-8 (Version None)
Quarter: 2008Q4

REPORT INFORMATION
  Report Type: 
  Country: None (occurrence: None)
  Receive Date: 20081113
  Receipt Date: 20081104
  Transmission Date: 20090506
  Serious: Yes (Hospitalization)
  Sender: FDA-Public Use
  Company Number: JP-JNJFOC-20080906343

PATIENT
  Sex: Female

DRUGS (6)
  1. RISPERDAL [Suspect]
     Indication: EPILEPSY
     Route: 048
  2. TEMODAL [Suspect]
     Indication: BRAIN NEOPLASM
     Route: 048
  3. EXCEGRAN [Suspect]
     Indication: EPILEPSY
     Route: 048
  4. LANSOPRAZOLE [Concomitant]
     Indication: GASTRIC ULCER
     Route: 048
  5. ZOFRAN ZYDIS [Concomitant]
     Indication: BRAIN NEOPLASM
     Route: 048
  6. COTRIM [Concomitant]
     Indication: BRAIN NEOPLASM
     Route: 048

REACTIONS (5)
  - GRANULOCYTOPENIA [None]
  - HYPERSENSITIVITY [None]
  - JAUNDICE [None]
  - MOUTH ULCERATION [None]
  - RASH GENERALISED [None]
